FAERS Safety Report 24781428 (Version 2)
Quarter: 2025Q1

REPORT INFORMATION
  Report Type: Report from Study
  Country: US (occurrence: US)
  Receive Date: 20241227
  Receipt Date: 20250112
  Transmission Date: 20250409
  Serious: Yes (Other)
  Sender: ABBVIE
  Company Number: US-ABBVIE-6064558

PATIENT
  Age: 71 Year
  Sex: Female
  Weight: 71.667 kg

DRUGS (7)
  1. VENCLEXTA [Suspect]
     Active Substance: VENETOCLAX
     Indication: Chronic lymphocytic leukaemia recurrent
     Dosage: FORM STRENGTH: 400 MILLIGRAMS
     Route: 048
     Dates: start: 202304
  2. VENCLEXTA [Suspect]
     Active Substance: VENETOCLAX
     Indication: Chronic lymphocytic leukaemia recurrent
     Dosage: FORM STRENGTH:100 MG
     Route: 048
     Dates: start: 202412
  3. NORVASC [Concomitant]
     Active Substance: AMLODIPINE BESYLATE
     Indication: Hypertension
  4. HUMALOG [Concomitant]
     Active Substance: INSULIN LISPRO
     Indication: Diabetes mellitus
  5. TRESIBA [Concomitant]
     Active Substance: INSULIN DEGLUDEC
     Indication: Diabetes mellitus
  6. METFORMIN [Concomitant]
     Active Substance: METFORMIN HYDROCHLORIDE
     Indication: Diabetes mellitus
  7. PROLIA [Concomitant]
     Active Substance: DENOSUMAB
     Indication: Osteopenia

REACTIONS (1)
  - Bone loss [Recovering/Resolving]

NARRATIVE: CASE EVENT DATE: 20241107
